FAERS Safety Report 12481455 (Version 8)
Quarter: 2016Q4

REPORT INFORMATION
  Report Type: Report from Study
  Country: FR (occurrence: FR)
  Receive Date: 20160620
  Receipt Date: 20161121
  Transmission Date: 20170207
  Serious: Yes (Other)
  Sender: FDA-Public Use
  Company Number: FR-ROCHE-1775636

PATIENT
  Age: 67 Year
  Sex: Female
  Weight: 67 kg

DRUGS (46)
  1. OBINUTUZUMAB [Suspect]
     Active Substance: OBINUTUZUMAB
     Dosage: CYCLE 1 DAY 1?ACTUAL DOSE: 88?PLANNED INITIAL INFUSION RATE:25?ACTUAL MAXIMUM INFUSION RATE: 25?STAR
     Route: 042
     Dates: start: 20140408, end: 20140408
  2. BENDAMUSTINE [Suspect]
     Active Substance: BENDAMUSTINE
     Dosage: CYCLE 6 DAY 1?PLANNED DOSE: 70 MG/M2, ACTUAL DOSE: 120 MG?START TIME: 17:20 END TIME: 18:20
     Route: 042
     Dates: start: 20140825, end: 20140825
  3. ZELITREX [Concomitant]
     Active Substance: VALACYCLOVIR HYDROCHLORIDE
     Route: 048
     Dates: start: 20140417
  4. BENDAMUSTINE [Suspect]
     Active Substance: BENDAMUSTINE
     Dosage: CYCLE 1 DAY 2?PLANNED DOSE: 70 MG/M2, ACTUAL DOSE: 70 MG/M2?START TIME: 20:00 END TIME: 21:00
     Route: 042
     Dates: start: 20140409, end: 20140409
  5. PENTACARINAT [Concomitant]
     Active Substance: PENTAMIDINE ISETHIONATE
     Dosage: SINGLE DOSE
     Route: 050
     Dates: start: 20140630, end: 20140630
  6. FUNGIZONE [Concomitant]
     Active Substance: AMPHOTERICIN B
     Indication: PROPHYLAXIS
     Route: 061
     Dates: start: 20140424, end: 20140503
  7. OBINUTUZUMAB [Suspect]
     Active Substance: OBINUTUZUMAB
     Dosage: CYCLE 4 DAY 1?ACTUAL DOSE: 1000?PLANNED INITIAL INFUSION RATE:400?ACTUAL MAXIMUM INFUSION RATE: 400
     Route: 042
     Dates: start: 20140630, end: 20140630
  8. OBINUTUZUMAB [Suspect]
     Active Substance: OBINUTUZUMAB
     Dosage: CYCLE 5 DAY 1?ACTUAL DOSE: 1000?PLANNED INITIAL INFUSION RATE:400?ACTUAL MAXIMUM INFUSION RATE: 400
     Route: 042
     Dates: start: 20140728, end: 20140728
  9. BENDAMUSTINE [Suspect]
     Active Substance: BENDAMUSTINE
     Indication: CHRONIC LYMPHOCYTIC LEUKAEMIA
     Dosage: CYCLE 1 DAY 1?PLANNED DOSE: 70 MG/M2, ACTUAL DOSE: 70 MG/M2?START TIME: 16:40 END TIME: 17:35
     Route: 042
     Dates: start: 20140408, end: 20140408
  10. BENDAMUSTINE [Suspect]
     Active Substance: BENDAMUSTINE
     Dosage: CYCLE 2 DAY 1?PLANNED DOSE: 70 MG/M2, ACTUAL DOSE: 70 MG/M2?START TIME: 18:30 END TIME: 19:40
     Route: 042
     Dates: start: 20140505, end: 20140505
  11. BENDAMUSTINE [Suspect]
     Active Substance: BENDAMUSTINE
     Dosage: CYCLE 3 DAY 2?PLANNED DOSE: 70 MG/M2, ACTUAL DOSE: 70 MG/M2?START TIME: 10:50 END TIME: 12:05
     Route: 042
     Dates: start: 20140603, end: 20140603
  12. BENDAMUSTINE [Suspect]
     Active Substance: BENDAMUSTINE
     Dosage: CYCLE 4 DAY 2?PLANNED DOSE: 70 MG/M2, ACTUAL DOSE: 70 MG/M2?START TIME: 10:30 END TIME: 11:15
     Route: 042
     Dates: start: 20140701, end: 20140701
  13. BENDAMUSTINE [Suspect]
     Active Substance: BENDAMUSTINE
     Dosage: CYCLE 5 DAY 1?PLANNED DOSE: 70 MG/M2, ACTUAL DOSE: 70 MG/M2?START TIME: 17:55 END TIME: 19:10
     Route: 042
     Dates: start: 20140728, end: 20140728
  14. EZETROL [Concomitant]
     Active Substance: EZETIMIBE
     Dosage: 1/DAY
     Route: 048
     Dates: start: 2003
  15. ZOPHREN [Concomitant]
     Active Substance: ONDANSETRON
     Route: 048
     Dates: start: 20140424, end: 20140601
  16. PENTACARINAT [Concomitant]
     Active Substance: PENTAMIDINE ISETHIONATE
     Indication: PROPHYLAXIS
     Dosage: SINGLE DOSE
     Route: 050
     Dates: start: 20140412, end: 20140412
  17. PENTACARINAT [Concomitant]
     Active Substance: PENTAMIDINE ISETHIONATE
     Dosage: SINGLE DOSE
     Route: 050
     Dates: start: 20140728, end: 20140728
  18. BENDAMUSTINE [Suspect]
     Active Substance: BENDAMUSTINE
     Dosage: CYCLE 2 DAY 2?PLANNED DOSE: 70 MG/M2, ACTUAL DOSE: 70 MG/M2?START TIME: 10:45 END TIME: 11:40
     Route: 042
     Dates: start: 20140506, end: 20140506
  19. BENDAMUSTINE [Suspect]
     Active Substance: BENDAMUSTINE
     Dosage: CYCLE 4 DAY 1?PLANNED DOSE: 70 MG/M2, ACTUAL DOSE: 70 MG/M2?START TIME: 17:00 END TIME: 18:00
     Route: 042
     Dates: start: 20140630, end: 20140630
  20. POLARAMINE [Concomitant]
     Active Substance: DEXCHLORPHENIRAMINE MALEATE
     Indication: PROPHYLAXIS
     Route: 042
     Dates: start: 20140408, end: 20140825
  21. ACUPAN [Concomitant]
     Active Substance: NEFOPAM HYDROCHLORIDE
     Indication: PROPHYLAXIS
     Route: 048
     Dates: start: 20140408, end: 20140411
  22. PRIMPERAN [Concomitant]
     Active Substance: METOCLOPRAMIDE HYDROCHLORIDE
     Indication: PROPHYLAXIS
     Dosage: SINGLE DOSE
     Route: 042
     Dates: start: 20140411, end: 20140411
  23. PYOSTACINE [Concomitant]
     Active Substance: PRISTINAMYCIN
     Route: 048
     Dates: start: 20141222
  24. OBINUTUZUMAB [Suspect]
     Active Substance: OBINUTUZUMAB
     Dosage: CYCLE 1 DAY 8?ACTUAL DOSE: 1000?PLANNED INITIAL INFUSION RATE:400?ACTUAL MAXIMUM INFUSION RATE: 400
     Route: 042
     Dates: start: 20140415, end: 20140415
  25. OBINUTUZUMAB [Suspect]
     Active Substance: OBINUTUZUMAB
     Dosage: CYCLE 1 DAY 15?ACTUAL DOSE: 1000?PLANNED INITIAL INFUSION RATE:400?ACTUAL MAXIMUM INFUSION RATE: 400
     Route: 042
     Dates: start: 20140422, end: 20140422
  26. BENDAMUSTINE [Suspect]
     Active Substance: BENDAMUSTINE
     Dosage: CYCLE 3 DAY 1?PLANNED DOSE: 70 MG/M2, ACTUAL DOSE: 70 MG/M2?START TIME: 18:00 END TIME: 19:00
     Route: 042
     Dates: start: 20140602, end: 20140602
  27. INEXIUM [Concomitant]
     Active Substance: ESOMEPRAZOLE
     Indication: PROPHYLAXIS
     Route: 048
     Dates: start: 20140407
  28. OBINUTUZUMAB [Suspect]
     Active Substance: OBINUTUZUMAB
     Dosage: CYCLE 1 DAY 2?ACTUAL DOSE: 900?PLANNED INITIAL INFUSION RATE:50?ACTUAL MAXIMUM INFUSION RATE: 50?STA
     Route: 042
     Dates: start: 20140409, end: 20140409
  29. OBINUTUZUMAB [Suspect]
     Active Substance: OBINUTUZUMAB
     Dosage: CYCLE 2 DAY 1?ACTUAL DOSE: 1000?PLANNED INITIAL INFUSION RATE:400?ACTUAL MAXIMUM INFUSION RATE: 400
     Route: 042
     Dates: start: 20140505, end: 20140505
  30. SOLU-MEDROL [Concomitant]
     Active Substance: METHYLPREDNISOLONE SODIUM SUCCINATE
     Indication: PROPHYLAXIS
     Route: 042
     Dates: start: 20140408, end: 20140825
  31. ZOPHREN [Concomitant]
     Active Substance: ONDANSETRON
     Indication: PROPHYLAXIS
     Route: 042
     Dates: start: 20140408, end: 20140410
  32. ZELITREX [Concomitant]
     Active Substance: VALACYCLOVIR HYDROCHLORIDE
     Indication: PROPHYLAXIS
     Dosage: SINGLE DOSE
     Route: 048
     Dates: start: 20140407, end: 20140407
  33. PRIMPERAN [Concomitant]
     Active Substance: METOCLOPRAMIDE HYDROCHLORIDE
     Dosage: AS REQUIRED
     Route: 048
     Dates: start: 20140417
  34. OBINUTUZUMAB [Suspect]
     Active Substance: OBINUTUZUMAB
     Dosage: CYCLE 3 DAY 1?ACTUAL DOSE: 1000?PLANNED INITIAL INFUSION RATE:400?ACTUAL MAXIMUM INFUSION RATE: 400
     Route: 042
     Dates: start: 20140602, end: 20140602
  35. OBINUTUZUMAB [Suspect]
     Active Substance: OBINUTUZUMAB
     Dosage: CYCLE 6 DAY 1?ACTUAL DOSE: 1000?PLANNED INITIAL INFUSION RATE:400?ACTUAL MAXIMUM INFUSION RATE: 400
     Route: 042
     Dates: start: 20140825, end: 20140825
  36. SPASFON (FRANCE) [Concomitant]
     Active Substance: PHLOROGLUCINOL
     Indication: PROPHYLAXIS
     Dosage: AS REQUIRED
     Route: 048
     Dates: start: 20140604
  37. PARACETAMOL [Concomitant]
     Active Substance: ACETAMINOPHEN
     Indication: PROPHYLAXIS
     Route: 042
     Dates: start: 20140408, end: 20140825
  38. FASTURTEC [Concomitant]
     Active Substance: RASBURICASE
     Indication: PROPHYLAXIS
     Route: 042
     Dates: start: 20140408, end: 20140410
  39. OBINUTUZUMAB [Suspect]
     Active Substance: OBINUTUZUMAB
     Indication: CHRONIC LYMPHOCYTIC LEUKAEMIA
     Dosage: CYCLE 1 DAY 1?ACTUAL DOSE: 12?PLANNED INITIAL INFUSION RATE:25?ACTUAL MAXIMUM INFUSION RATE: 25?STAR
     Route: 042
     Dates: start: 20140408, end: 20140408
  40. BENDAMUSTINE [Suspect]
     Active Substance: BENDAMUSTINE
     Dosage: CYCLE 5 DAY 2?PLANNED DOSE: 70 MG/M2, ACTUAL DOSE: 70 MG/M2?START TIME: 08:45 END TIME: 10:00
     Route: 042
     Dates: start: 20140729, end: 20140729
  41. BENDAMUSTINE [Suspect]
     Active Substance: BENDAMUSTINE
     Dosage: CYCLE 6 DAY 2?PLANNED DOSE: 70 MG/M2, ACTUAL DOSE: 70 MG/M2?START TIME: 11:20 END TIME: 12:05
     Route: 042
     Dates: start: 20140826, end: 20140826
  42. ACYCLOVIR. [Concomitant]
     Active Substance: ACYCLOVIR
     Dosage: X 3/DAY
     Route: 065
  43. SOLU-MEDROL [Concomitant]
     Active Substance: METHYLPREDNISOLONE SODIUM SUCCINATE
     Dosage: SINGLE DOSE
     Route: 042
     Dates: start: 20140408, end: 20140408
  44. PENTACARINAT [Concomitant]
     Active Substance: PENTAMIDINE ISETHIONATE
     Dosage: SINGLE DOSE
     Route: 050
     Dates: start: 20140825, end: 20140825
  45. PENTACARINAT [Concomitant]
     Active Substance: PENTAMIDINE ISETHIONATE
     Dosage: SINGLE DOSE
     Route: 050
     Dates: start: 20140506, end: 20140506
  46. DUPHALAC (FRANCE) [Concomitant]
     Active Substance: LACTULOSE
     Indication: PROPHYLAXIS
     Dosage: AS REQUIRED
     Route: 048
     Dates: start: 20140424, end: 20140727

REACTIONS (1)
  - Intraductal proliferative breast lesion [Not Recovered/Not Resolved]

NARRATIVE: CASE EVENT DATE: 20160317
